FAERS Safety Report 25831306 (Version 3)
Quarter: 2025Q4

REPORT INFORMATION
  Report Type: Spontaneous
  Country: TR (occurrence: TR)
  Receive Date: 20250922
  Receipt Date: 20251201
  Transmission Date: 20260117
  Serious: Yes (Other)
  Sender: NOVO NORDISK
  Company Number: TR-NOVOPROD-1524440

PATIENT
  Age: 43 Year
  Sex: Female

DRUGS (3)
  1. DULCOLAX (BISACODYL) [Concomitant]
     Active Substance: BISACODYL
     Dosage: UNK
  2. OZEMPIC [Suspect]
     Active Substance: SEMAGLUTIDE
     Indication: Weight control
     Dosage: 2 MG, QW
  3. BEKUNIS [SENNA ALEXANDRINA] [Concomitant]
     Dosage: UNK

REACTIONS (4)
  - Terminal ileitis [Unknown]
  - Diverticulitis [Unknown]
  - Constipation [Unknown]
  - Off label use [Unknown]
